FAERS Safety Report 5627801-6 (Version None)
Quarter: 2008Q1

REPORT INFORMATION
  Report Type: 
  Country: None (occurrence: None)
  Receive Date: 20080215
  Receipt Date: 20080206
  Transmission Date: 20080703
  Serious: Yes (Hospitalization)
  Sender: FDA-Public Use
  Company Number: B0508064A

PATIENT
  Age: 64 Year
  Sex: Female

DRUGS (1)
  1. AUGMENTIN '125' [Suspect]
     Indication: UPPER RESPIRATORY TRACT INFECTION
     Dosage: 2TAB PER DAY
     Route: 048
     Dates: start: 20071108, end: 20071109

REACTIONS (4)
  - PRURITUS [None]
  - RASH GENERALISED [None]
  - SKIN INFLAMMATION [None]
  - SKIN OEDEMA [None]
